FAERS Safety Report 4659381-6 (Version None)
Quarter: 2005Q2

REPORT INFORMATION
  Report Type: 
  Country: None (occurrence: None)
  Receive Date: 20050510
  Receipt Date: 20050426
  Transmission Date: 20051028
  Serious: Yes (Other)
  Sender: FDA-Public Use
  Company Number: 2005BI004381

PATIENT
  Age: 54 Year
  Sex: Female
  Weight: 75.5 kg

DRUGS (1)
  1. AVONEX [Suspect]
     Indication: MULTIPLE SCLEROSIS
     Dosage: 30 UG; QE; IM
     Route: 030
     Dates: start: 20010529, end: 20031021

REACTIONS (6)
  - ARTHRALGIA [None]
  - BRAIN SCAN ABNORMAL [None]
  - CONDITION AGGRAVATED [None]
  - LUNG ADENOCARCINOMA [None]
  - MULTIPLE SCLEROSIS [None]
  - THERAPY NON-RESPONDER [None]
